FAERS Safety Report 6859793-6 (Version None)
Quarter: 2010Q3

REPORT INFORMATION
  Report Type: 
  Country: None (occurrence: None)
  Receive Date: 20100720
  Receipt Date: 20100706
  Transmission Date: 20110219
  Serious: Yes (Other)
  Sender: FDA-Public Use
  Company Number: JP-RANBAXY-2010RR-35786

PATIENT
  Age: 85 Year
  Sex: Female

DRUGS (3)
  1. ETODOLAC [Suspect]
     Indication: OSTEOARTHRITIS
     Dosage: 400 MG, BID
     Route: 048
  2. CALCIUM POLYSTYRENE SULFONATE [Concomitant]
  3. HYDROCORTISONE [Concomitant]

REACTIONS (2)
  - BRADYCARDIA [None]
  - HYPERKALAEMIA [None]
